FAERS Safety Report 26052379 (Version 1)
Quarter: 2025Q4

REPORT INFORMATION
  Report Type: Spontaneous
  Country: EU (occurrence: EU)
  Receive Date: 20251117
  Receipt Date: 20251117
  Transmission Date: 20260117
  Serious: Yes (Life-Threatening, Hospitalization, Other)
  Sender: COSETTE PHARMACEUTICALS INC
  Company Number: EU-DSJP-DSE-2017-153689

PATIENT
  Sex: Male

DRUGS (2)
  1. BENICAR [Suspect]
     Active Substance: OLMESARTAN MEDOXOMIL
     Indication: Exposure during pregnancy
     Route: 064
  2. AMLODIPINE [Suspect]
     Active Substance: AMLODIPINE BESYLATE
     Indication: Exposure during pregnancy
     Route: 064

REACTIONS (10)
  - Potter^s syndrome [Unknown]
  - Renal failure neonatal [Recovered/Resolved]
  - Pulmonary hypoplasia [Unknown]
  - Neonatal pneumothorax [Unknown]
  - Hypertension neonatal [Unknown]
  - Neonatal anuria [Unknown]
  - Hypotonia neonatal [Unknown]
  - Areflexia [Unknown]
  - Foetal exposure during pregnancy [Unknown]
  - Premature baby [Unknown]
